FAERS Safety Report 11616693 (Version 2)
Quarter: 2015Q4

REPORT INFORMATION
  Report Type: Spontaneous
  Country: US (occurrence: US)
  Receive Date: 20151009
  Receipt Date: 20151221
  Transmission Date: 20160304
  Serious: Yes (Hospitalization)
  Sender: FDA-Public Use
  Company Number: US-BAYER-2015-434400

PATIENT
  Age: 31 Year
  Sex: Female
  Weight: 72.56 kg

DRUGS (1)
  1. GADAVIST [Suspect]
     Active Substance: GADOBUTROL
     Indication: NUCLEAR MAGNETIC RESONANCE IMAGING
     Dosage: 7 ML, ONCE
     Dates: start: 20150930, end: 20150930

REACTIONS (6)
  - Dyspnoea [None]
  - Wheezing [None]
  - Dizziness [None]
  - Feeling hot [None]
  - Hyperhidrosis [None]
  - Nausea [None]

NARRATIVE: CASE EVENT DATE: 20150930
